FAERS Safety Report 20605841 (Version 4)
Quarter: 2022Q3

REPORT INFORMATION
  Report Type: Report from Study
  Country: US (occurrence: US)
  Receive Date: 20220317
  Receipt Date: 20220905
  Transmission Date: 20221027
  Serious: Yes (Hospitalization)
  Sender: FDA-Public Use
  Company Number: US-NOVARTISPH-NVSC2022US061178

PATIENT
  Age: 82 Year
  Sex: Male

DRUGS (2)
  1. ENTRESTO [Suspect]
     Active Substance: SACUBITRIL\VALSARTAN
     Indication: Product used for unknown indication
     Dosage: 1 DOSAGE FORM, BID, (SACUBITRIL: 24 MG, VALSARTAN: 26 MG)
     Route: 048
     Dates: start: 202112
  2. ENTRESTO [Suspect]
     Active Substance: SACUBITRIL\VALSARTAN
     Dosage: 0.5 DOSAGE FORM
     Route: 048

REACTIONS (7)
  - Cardiac failure congestive [Recovering/Resolving]
  - Blood iron decreased [Recovering/Resolving]
  - Gait disturbance [Recovering/Resolving]
  - Fatigue [Recovering/Resolving]
  - Asthenia [Unknown]
  - Hypotension [Unknown]
  - Wrong technique in product usage process [Unknown]

NARRATIVE: CASE EVENT DATE: 20220701
